FAERS Safety Report 18812528 (Version 3)
Quarter: 2021Q1

REPORT INFORMATION
  Report Type: Report from Study
  Country: DE (occurrence: DE)
  Receive Date: 20210130
  Receipt Date: 20210312
  Transmission Date: 20210419
  Serious: Yes (Hospitalization, Other)
  Sender: FDA-Public Use
  Company Number: NVSC2020DE336328

PATIENT
  Age: 59 Year
  Sex: Female
  Weight: 25.85 kg

DRUGS (3)
  1. GILENYA [Suspect]
     Active Substance: FINGOLIMOD HYDROCHLORIDE
     Dosage: 0.5 MG, QD
     Route: 048
     Dates: start: 20201218
  2. IBUPROFEN. [Concomitant]
     Active Substance: IBUPROFEN
     Indication: PAIN
     Dosage: UNK (UP TO THREE)
     Route: 065
  3. GILENYA [Suspect]
     Active Substance: FINGOLIMOD HYDROCHLORIDE
     Indication: MULTIPLE SCLEROSIS
     Dosage: 0.5 MG, QD
     Route: 048
     Dates: start: 20180926, end: 20201214

REACTIONS (14)
  - Squamous cell carcinoma [Unknown]
  - Iridocyclitis [Unknown]
  - Vitreous opacities [Unknown]
  - Intervertebral disc protrusion [Unknown]
  - Retinopathy proliferative [Not Recovered/Not Resolved]
  - Macular oedema [Not Recovered/Not Resolved]
  - Ataxia [Recovering/Resolving]
  - Cystoid macular oedema [Not Recovered/Not Resolved]
  - Cerebral atrophy [Unknown]
  - Conjunctival hyperaemia [Unknown]
  - Retinal degeneration [Not Recovered/Not Resolved]
  - Hypoaesthesia [Recovering/Resolving]
  - Multiple sclerosis [Not Recovered/Not Resolved]
  - Radiculopathy [Unknown]

NARRATIVE: CASE EVENT DATE: 20201214
